FAERS Safety Report 18375259 (Version 4)
Quarter: 2023Q4

REPORT INFORMATION
  Report Type: Report from Study
  Country: JP (occurrence: JP)
  Receive Date: 20201013
  Receipt Date: 20231201
  Transmission Date: 20240109
  Serious: Yes (Hospitalization, Other)
  Sender: FDA-Public Use
  Company Number: JP-ALEXION-A202014599

PATIENT
  Age: 53 Year
  Sex: Female
  Weight: 60 kg

DRUGS (14)
  1. SOLIRIS [Suspect]
     Active Substance: ECULIZUMAB
     Indication: Neuromyelitis optica spectrum disorder
     Dosage: 900 MG, QW
     Route: 042
     Dates: start: 20200318, end: 20200408
  2. SOLIRIS [Suspect]
     Active Substance: ECULIZUMAB
     Dosage: 1200 MG, Q2W
     Route: 042
     Dates: start: 20200415
  3. PREDNISOLONE [Suspect]
     Active Substance: PREDNISOLONE
     Indication: Neuromyelitis optica spectrum disorder
     Dosage: 21-30 MG, QD
     Route: 048
     Dates: start: 20190607, end: 20190615
  4. PREDNISOLONE [Suspect]
     Active Substance: PREDNISOLONE
     Indication: Vestibular neuronitis
     Dosage: 16-20 MG, QD
     Route: 048
     Dates: start: 20190616, end: 20190712
  5. PREDNISOLONE [Suspect]
     Active Substance: PREDNISOLONE
     Dosage: 14-15 MG, QD
     Route: 048
     Dates: start: 20190713, end: 20191129
  6. PREDNISOLONE [Suspect]
     Active Substance: PREDNISOLONE
     Dosage: 11-13 MG, QD
     Route: 048
     Dates: start: 20191130, end: 20200428
  7. PREDNISOLONE [Suspect]
     Active Substance: PREDNISOLONE
     Dosage: 9-10 MG, QD
     Route: 048
     Dates: start: 20200429, end: 20201110
  8. PREDNISOLONE [Suspect]
     Active Substance: PREDNISOLONE
     Dosage: 8 MG, QD
     Route: 048
     Dates: start: 20201111, end: 20210816
  9. PREDNISOLONE [Suspect]
     Active Substance: PREDNISOLONE
     Dosage: 20 MG, QD
     Route: 048
     Dates: start: 20210817, end: 20210829
  10. PREDNISOLONE [Suspect]
     Active Substance: PREDNISOLONE
     Dosage: 6 MG, QD
     Route: 048
     Dates: start: 20210830, end: 20211108
  11. PREDNISOLONE [Suspect]
     Active Substance: PREDNISOLONE
     Dosage: 5 MG, QD
     Route: 048
     Dates: start: 20211109, end: 20221101
  12. PREDNISOLONE [Suspect]
     Active Substance: PREDNISOLONE
     Dosage: 4 MILLIGRAM, QD
     Route: 048
     Dates: start: 20221102
  13. AZATHIOPRINE [Suspect]
     Active Substance: AZATHIOPRINE
     Indication: Neuromyelitis optica spectrum disorder
     Dosage: 50 MG, QD
     Route: 048
     Dates: start: 20190906, end: 20220817
  14. ACTONEL [Concomitant]
     Active Substance: RISEDRONATE SODIUM
     Indication: Osteoporosis
     Dosage: 75 MG, QMONTH
     Route: 048

REACTIONS (4)
  - Vestibular neuronitis [Recovering/Resolving]
  - COVID-19 [Recovered/Resolved]
  - Abnormal sensation in eye [Recovering/Resolving]
  - Condition aggravated [Recovering/Resolving]

NARRATIVE: CASE EVENT DATE: 20200708
